FAERS Safety Report 22258130 (Version 1)
Quarter: 2023Q2

REPORT INFORMATION
  Report Type: Spontaneous
  Country: CN (occurrence: CN)
  Receive Date: 20230427
  Receipt Date: 20230427
  Transmission Date: 20230721
  Serious: Yes (Other)
  Sender: FDA-Public Use
  Company Number: CN-SUNPHARMA-2023R1-386447AA

PATIENT
  Age: 54 Year
  Sex: Female
  Weight: 52 kg

DRUGS (2)
  1. GEMCITABINE [Suspect]
     Active Substance: GEMCITABINE
     Indication: Chemotherapy
     Dosage: 1500 MILLIGRAM
     Route: 042
  2. OXALIPLATIN [Suspect]
     Active Substance: OXALIPLATIN
     Indication: Chemotherapy
     Dosage: 120 MILLIGRAM
     Route: 042

REACTIONS (3)
  - Disease recurrence [Unknown]
  - Nausea [Unknown]
  - Vomiting [Unknown]
